FAERS Safety Report 7411860-4 (Version None)
Quarter: 2011Q2

REPORT INFORMATION
  Report Type: 
  Country: None (occurrence: None)
  Receive Date: 20110413
  Receipt Date: 20110408
  Transmission Date: 20111010
  Serious: Yes (Hospitalization)
  Sender: FDA-Public Use
  Company Number: UY-ABBOTT-11P-168-0704746-00

PATIENT
  Sex: Male
  Weight: 51 kg

DRUGS (2)
  1. HUMIRA [Suspect]
     Indication: ANKYLOSING SPONDYLITIS
     Dates: start: 20090701
  2. HUMIRA [Suspect]

REACTIONS (2)
  - RENAL IMPAIRMENT [None]
  - INVESTIGATION ABNORMAL [None]
